FAERS Safety Report 23920207 (Version 1)
Quarter: 2024Q2

REPORT INFORMATION
  Report Type: Spontaneous
  Country: US (occurrence: None)
  Receive Date: 20240530
  Receipt Date: 20240530
  Transmission Date: 20240716
  Serious: Yes (Hospitalization)
  Sender: FDA-Public Use
  Company Number: None

PATIENT
  Sex: Female
  Weight: 107.5 kg

DRUGS (2)
  1. CARBOPLATIN [Suspect]
     Active Substance: CARBOPLATIN
     Dates: end: 20240501
  2. TAXOL [Suspect]
     Active Substance: PACLITAXEL
     Dates: end: 20240501

REACTIONS (5)
  - Peripheral sensory neuropathy [None]
  - Anaemia [None]
  - Fatigue [None]
  - Dizziness [None]
  - Hypokalaemia [None]

NARRATIVE: CASE EVENT DATE: 20240521
